FAERS Safety Report 4648966-9 (Version None)
Quarter: 2005Q2

REPORT INFORMATION
  Report Type: 
  Country: None (occurrence: None)
  Receive Date: 20050427
  Receipt Date: 20050414
  Transmission Date: 20051028
  Serious: Yes (Other)
  Sender: FDA-Public Use
  Company Number: HQWYE087918APR05

PATIENT
  Age: 63 Year
  Sex: Female
  Weight: 51.3 kg

DRUGS (14)
  1. PROTONIX [Suspect]
     Indication: ASTHMA
     Dosage: 40 MG 1X PER 1 DAY, ORAL
     Route: 048
     Dates: start: 20050408
  2. NPH INSULIN [Concomitant]
  3. NOVOLOG [Concomitant]
  4. POTASSIUM CHLORIDE [Concomitant]
  5. PREDNISONE [Concomitant]
  6. SYNTHROID (LEVOTHYOXINE SODIUM) [Concomitant]
  7. COLESTID [Concomitant]
  8. BENICAR [Concomitant]
  9. ADVAIR (FLUTICASONE PROPIONATE/SALMETEROL XINAFOATE) [Concomitant]
  10. LANTUS [Concomitant]
  11. CALCIUM WITH VITAMIN D (CALCIUM PHOSPHATE/CALCIUM SODIUM LACTATE/ERGOC [Concomitant]
  12. ROBINUL (GLYCOPRYROLATE) [Concomitant]
  13. MULTIVITAMINS (ASCORBIC ACID/ERGOCALCIFEROL/FOLIC ACID/NICOTINAMIDE/PA [Concomitant]
  14. VITAMIN B12 [Concomitant]

REACTIONS (5)
  - ABDOMINAL DISTENSION [None]
  - BLOOD GLUCOSE DECREASED [None]
  - DIARRHOEA [None]
  - FLATULENCE [None]
  - VOMITING [None]
